FAERS Safety Report 4949137-9 (Version None)
Quarter: 2006Q1

REPORT INFORMATION
  Report Type: 
  Country: None (occurrence: None)
  Receive Date: 20060321
  Receipt Date: 20051101
  Transmission Date: 20060701
  Serious: Yes (Death, Hospitalization)
  Sender: FDA-Public Use
  Company Number: US-MERCK-0511USA00248

PATIENT
  Age: 74 Year
  Sex: Male
  Weight: 110 kg

DRUGS (6)
  1. VIOXX [Suspect]
     Indication: PAIN
     Route: 048
  2. ATENOLOL [Concomitant]
     Route: 048
  3. ENALAPRIL MALEATE [Concomitant]
     Route: 048
  4. HYDROCHLOROTHIAZIDE [Concomitant]
     Route: 048
  5. SONATA [Concomitant]
     Route: 048
  6. ULTRACET [Concomitant]
     Route: 065

REACTIONS (17)
  - ALCOHOLISM [None]
  - ARTERIAL THROMBOSIS LIMB [None]
  - BALANCE DISORDER [None]
  - CARDIO-RESPIRATORY ARREST [None]
  - CELLULITIS [None]
  - CEREBRAL THROMBOSIS [None]
  - CEREBROVASCULAR ACCIDENT [None]
  - CHRONIC OBSTRUCTIVE PULMONARY DISEASE [None]
  - CONVULSION [None]
  - DIZZINESS [None]
  - ELECTROMECHANICAL DISSOCIATION [None]
  - HYPERTENSION [None]
  - LACUNAR INFARCTION [None]
  - NIGHT SWEATS [None]
  - PRODUCTIVE COUGH [None]
  - TOBACCO ABUSE [None]
  - TRANSIENT ISCHAEMIC ATTACK [None]
